FAERS Safety Report 15858162 (Version 1)
Quarter: 2019Q1

REPORT INFORMATION
  Report Type: Spontaneous
  Country: FR (occurrence: FR)
  Receive Date: 20190123
  Receipt Date: 20190123
  Transmission Date: 20190417
  Serious: Yes (Life-Threatening, Hospitalization)
  Sender: FDA-Public Use
  Company Number: FR-009507513-1901FRA006239

PATIENT
  Age: 11 Year
  Sex: Female
  Weight: 46 kg

DRUGS (4)
  1. UVEDOSE [Concomitant]
     Active Substance: CHOLECALCIFEROL
  2. HELICIDINE [Suspect]
     Active Substance: ESCARGOT
     Indication: COUGH
     Dosage: 1 DOSAGE FORM, QD
     Route: 048
     Dates: start: 201811, end: 201811
  3. DOLIPRANE [Concomitant]
     Active Substance: ACETAMINOPHEN
  4. AERIUS (DESLORATADINE) [Suspect]
     Active Substance: DESLORATADINE
     Indication: COUGH
     Dosage: 1 DOSAGE FORM, QD
     Route: 048
     Dates: start: 201811, end: 201811

REACTIONS (1)
  - Toxic epidermal necrolysis [Not Recovered/Not Resolved]

NARRATIVE: CASE EVENT DATE: 20181124
